FAERS Safety Report 7145958-5 (Version None)
Quarter: 2010Q4

REPORT INFORMATION
  Report Type: 
  Country: None (occurrence: None)
  Receive Date: 20101208
  Receipt Date: 20101202
  Transmission Date: 20110411
  Serious: Yes (Other)
  Sender: FDA-Public Use
  Company Number: EG-ROCHE-746196

PATIENT
  Sex: Female

DRUGS (4)
  1. PEGINTERFERON ALFA-2A [Suspect]
     Indication: HEPATITIS C
     Route: 058
     Dates: start: 20101019
  2. PEGINTERFERON ALFA-2A [Suspect]
     Dosage: DOSE, FREQUENCY NOT REPORTED.
     Route: 058
     Dates: start: 20101102
  3. RIBAVIRIN [Suspect]
     Indication: HEPATITIS C
     Route: 065
     Dates: start: 20101019
  4. BLINDED BMS-790052 (HCV NS5A INHIBITOR) [Suspect]
     Indication: HEPATITIS C
     Dosage: THE TREATMENT WAS UNBLINDED AND PATIENT WAS RECEIVING BLINDED BMS-790052 (HCV NS5A INHIBITOR).
     Route: 048
     Dates: start: 20101019

REACTIONS (4)
  - BLOOD GLUCOSE INCREASED [None]
  - CONVULSION [None]
  - LOSS OF CONSCIOUSNESS [None]
  - MUSCLE CONTRACTIONS INVOLUNTARY [None]
